FAERS Safety Report 11236121 (Version 1)
Quarter: 2015Q3

REPORT INFORMATION
  Report Type: Spontaneous
  Country: US (occurrence: US)
  Receive Date: 20150702
  Receipt Date: 20150702
  Transmission Date: 20151125
  Serious: No
  Sender: FDA-Public Use
  Company Number: US-TAKEDA-2015TUS003593

PATIENT
  Age: 60 Year
  Sex: Female
  Weight: 71.66 kg

DRUGS (4)
  1. CONTRAVE [Suspect]
     Active Substance: BUPROPION HYDROCHLORIDE\NALTREXONE HYDROCHLORIDE
     Dosage: WEEK TWO, UNK
     Route: 048
     Dates: start: 20150118, end: 20150124
  2. CONTRAVE [Suspect]
     Active Substance: BUPROPION HYDROCHLORIDE\NALTREXONE HYDROCHLORIDE
     Dosage: WEEK THREE, UNK
     Route: 048
     Dates: start: 20150125, end: 20150131
  3. CONTRAVE [Suspect]
     Active Substance: BUPROPION HYDROCHLORIDE\NALTREXONE HYDROCHLORIDE
     Dosage: WEEK FOUR, UNK
     Route: 048
     Dates: start: 20150201, end: 20150305
  4. CONTRAVE [Suspect]
     Active Substance: BUPROPION HYDROCHLORIDE\NALTREXONE HYDROCHLORIDE
     Indication: WEIGHT CONTROL
     Dosage: WEEK ONE, UNK
     Route: 048
     Dates: start: 20150111, end: 20150117

REACTIONS (11)
  - Lymphadenopathy [Not Recovered/Not Resolved]
  - Tongue blistering [Not Recovered/Not Resolved]
  - Pruritus [Not Recovered/Not Resolved]
  - Blister [Not Recovered/Not Resolved]
  - Lip blister [Not Recovered/Not Resolved]
  - Dizziness [Recovered/Resolved]
  - Oral mucosal blistering [Not Recovered/Not Resolved]
  - Stomatitis [Not Recovered/Not Resolved]
  - Somnolence [Recovered/Resolved]
  - Rash [Not Recovered/Not Resolved]
  - Constipation [Recovered/Resolved]
